FAERS Safety Report 8482115-4 (Version None)
Quarter: 2012Q3

REPORT INFORMATION
  Report Type: 
  Country: None (occurrence: None)
  Receive Date: 20120702
  Receipt Date: 20120625
  Transmission Date: 20120928
  Serious: Yes (Other)
  Sender: FDA-Public Use
  Company Number: US-PFIZER INC-2009281365

PATIENT
  Sex: Male
  Weight: 68 kg

DRUGS (6)
  1. NEXIUM [Concomitant]
     Indication: THYROIDECTOMY
     Dosage: 40 MG, 1X/DAY
     Dates: start: 20000101
  2. VITAMIN D [Concomitant]
     Dosage: UNK
  3. SUTENT [Suspect]
     Dosage: 37.5 MG, UNK
     Dates: start: 20090608
  4. SYNTHROID [Concomitant]
     Indication: THYROIDECTOMY
     Dates: start: 20000101
  5. SUTENT [Suspect]
     Indication: THYROID CANCER
     Dosage: 50 MG, 1X/DAY, 4 WEEKS ON AND 2 WEEKS OFF
     Dates: start: 20090611
  6. SUTENT [Suspect]
     Dosage: 37.5 MG, X 21 DAYS EVERY 28 DAYS
     Dates: start: 20091008

REACTIONS (15)
  - DECREASED APPETITE [None]
  - WHITE BLOOD CELL COUNT DECREASED [None]
  - HYPERSOMNIA [None]
  - EPISTAXIS [None]
  - SKIN BURNING SENSATION [None]
  - HERPES ZOSTER OPHTHALMIC [None]
  - PALMAR-PLANTAR ERYTHRODYSAESTHESIA SYNDROME [None]
  - THYROID CANCER [None]
  - IMMUNOSUPPRESSION [None]
  - PLATELET COUNT DECREASED [None]
  - COUGH [None]
  - ABDOMINAL DISCOMFORT [None]
  - DIARRHOEA [None]
  - DISEASE PROGRESSION [None]
  - FACIAL PAIN [None]
